FAERS Safety Report 18739541 (Version 1)
Quarter: 2021Q1

REPORT INFORMATION
  Report Type: Spontaneous
  Country: US (occurrence: US)
  Receive Date: 20210114
  Receipt Date: 20210114
  Transmission Date: 20210419
  Serious: No
  Sender: FDA-Public Use
  Company Number: US-DEXPHARM-20200246

PATIENT
  Age: 71 Year
  Sex: Male
  Weight: 81.63 kg

DRUGS (1)
  1. OMEPRAZOLE DELAYED RELEASE ORALLY DISINTEGRATING STRAWBERRY TABLETS 20 [Suspect]
     Active Substance: OMEPRAZOLE
     Indication: DYSPEPSIA
     Dosage: UNKNOWN, UNKNOWN
     Route: 048
     Dates: start: 20200309

REACTIONS (1)
  - Drug ineffective [Unknown]

NARRATIVE: CASE EVENT DATE: 20200309
